FAERS Safety Report 12192603 (Version 2)
Quarter: 2016Q2

REPORT INFORMATION
  Report Type: Spontaneous
  Country: IT (occurrence: IT)
  Receive Date: 20160318
  Receipt Date: 20160419
  Transmission Date: 20160815
  Serious: Yes (Other)
  Sender: FDA-Public Use
  Company Number: IT-PFIZER INC-2016163942

PATIENT
  Sex: Female

DRUGS (2)
  1. FOLIC ACID. [Concomitant]
     Active Substance: FOLIC ACID
  2. DOSTINEX [Suspect]
     Active Substance: CABERGOLINE
     Indication: PITUITARY TUMOUR BENIGN
     Dosage: 0.5 (UNITS UNSPECIFIED) 1 TABLET, WEEKLY
     Dates: start: 201511

REACTIONS (8)
  - Nasal herpes [Recovered/Resolved]
  - Migraine [Not Recovered/Not Resolved]
  - Cyanosis [Recovered/Resolved]
  - Condition aggravated [Recovered/Resolved]
  - Raynaud^s phenomenon [Recovered/Resolved]
  - Swelling [Recovered/Resolved]
  - Eye haemorrhage [Recovered/Resolved]
  - Flushing [Not Recovered/Not Resolved]
